FAERS Safety Report 24780934 (Version 1)
Quarter: 2024Q4

REPORT INFORMATION
  Report Type: Report from Study
  Country: JP (occurrence: JP)
  Receive Date: 20241227
  Receipt Date: 20241227
  Transmission Date: 20250114
  Serious: Yes (Hospitalization)
  Sender: ABBVIE
  Company Number: JP-ABBVIE-5562709

PATIENT
  Age: 66 Year
  Sex: Male

DRUGS (1)
  1. FOSCARBIDOPA\FOSLEVODOPA [Suspect]
     Active Substance: FOSCARBIDOPA\FOSLEVODOPA
     Indication: Parkinson^s disease
     Route: 058
     Dates: start: 20231218, end: 20240119

REACTIONS (6)
  - Malaise [Unknown]
  - Hypoaesthesia [Unknown]
  - Mobility decreased [Unknown]
  - Hallucination [Unknown]
  - Cold sweat [Unknown]
  - Movement disorder [Unknown]

NARRATIVE: CASE EVENT DATE: 20231201
